FAERS Safety Report 11224351 (Version 1)
Quarter: 2015Q2

REPORT INFORMATION
  Report Type: Spontaneous
  Country: US (occurrence: US)
  Receive Date: 20150629
  Receipt Date: 20150629
  Transmission Date: 20150821
  Serious: Yes (Death)
  Sender: FDA-Public Use
  Company Number: US-HORIZON-ACT-0103-2015

PATIENT
  Age: 80 Year
  Sex: Male

DRUGS (1)
  1. ACTIMMUNE [Suspect]
     Active Substance: INTERFERON GAMMA-1B
     Indication: IDIOPATHIC PULMONARY FIBROSIS
     Dates: start: 2012, end: 201412

REACTIONS (2)
  - Off label use [Unknown]
  - Cardiac death [Fatal]

NARRATIVE: CASE EVENT DATE: 20150410
